FAERS Safety Report 24200537 (Version 2)
Quarter: 2024Q3

REPORT INFORMATION
  Report Type: Spontaneous
  Country: US (occurrence: US)
  Receive Date: 20240812
  Receipt Date: 20240912
  Transmission Date: 20241016
  Serious: No
  Sender: PFIZER
  Company Number: US-PFIZER INC-PV202400102894

PATIENT
  Age: 49 Year
  Sex: Female

DRUGS (1)
  1. NURTEC ODT [Suspect]
     Active Substance: RIMEGEPANT SULFATE
     Indication: Migraine
     Dosage: 75 MG, ALTERNATE DAY (DISSOLVE ONE ORAL DISINTEGRATING TABLET IN MOUTH EVERY OTHER DAY)
     Route: 048
     Dates: start: 20220523, end: 20231124

REACTIONS (1)
  - Drug ineffective [Unknown]
